FAERS Safety Report 16269734 (Version 1)
Quarter: 2019Q2

REPORT INFORMATION
  Report Type: Spontaneous
  Country: ES (occurrence: ES)
  Receive Date: 20190503
  Receipt Date: 20190503
  Transmission Date: 20190711
  Serious: No
  Sender: FDA-Public Use
  Company Number: ES-ALLERGAN-1918824US

PATIENT
  Age: 43 Year
  Sex: Male

DRUGS (6)
  1. LACOSAMIDE. [Concomitant]
     Active Substance: LACOSAMIDE
     Indication: PAIN
     Dosage: 200 MG, UNKNOWN
     Route: 065
  2. ESOMEPRAZOLE. [Concomitant]
     Active Substance: ESOMEPRAZOLE MAGNESIUM
     Dosage: 80 MG, UNKNOWN
     Route: 065
  3. VENLAFAXINE HYDROCHLORIDE. [Concomitant]
     Active Substance: VENLAFAXINE HYDROCHLORIDE
     Dosage: 150 UNK, UNKNOWN
     Route: 065
  4. ASENAPINE MALEATE - BP [Suspect]
     Active Substance: ASENAPINE MALEATE
     Indication: PRODUCT USED FOR UNKNOWN INDICATION
     Dosage: UNK
     Route: 065
     Dates: start: 20190410, end: 20190412
  5. ALPRAZOLAM. [Concomitant]
     Active Substance: ALPRAZOLAM
     Dosage: 0.5 MG, UNKNOWN
     Route: 065
  6. OXYCODONE [Concomitant]
     Active Substance: OXYCODONE
     Dosage: 60 MG, QD
     Route: 065

REACTIONS (3)
  - Pruritus [Unknown]
  - Oedema [Unknown]
  - Erythema [Unknown]

NARRATIVE: CASE EVENT DATE: 201904
